FAERS Safety Report 10012897 (Version 2)
Quarter: 2014Q1

REPORT INFORMATION
  Report Type: Spontaneous
  Country: US (occurrence: US)
  Receive Date: 20140314
  Receipt Date: 20140314
  Transmission Date: 20141002
  Serious: No
  Sender: FDA-Public Use
  Company Number: US-PFIZER INC-2014040679

PATIENT
  Sex: 0

DRUGS (1)
  1. PRISTIQ [Suspect]
     Indication: MIGRAINE
     Dosage: UNK

REACTIONS (3)
  - Off label use [Unknown]
  - Migraine [Unknown]
  - Therapeutic response unexpected [Unknown]
